FAERS Safety Report 6200252-1 (Version None)
Quarter: 2009Q2

REPORT INFORMATION
  Report Type: 
  Country: None (occurrence: None)
  Receive Date: 20090522
  Receipt Date: 20070823
  Transmission Date: 20091009
  Serious: No
  Sender: FDA-Public Use
  Company Number: US-ALEXION-A200700050

PATIENT
  Sex: Male
  Weight: 98.866 kg

DRUGS (7)
  1. SOLIRIS [Suspect]
     Indication: PAROXYSMAL NOCTURNAL HAEMOGLOBINURIA
     Route: 042
     Dates: start: 20050101
  2. SOLIRIS [Suspect]
     Dosage: 600 MG, SINGLE
     Route: 042
     Dates: start: 20070502, end: 20070502
  3. SOLIRIS [Suspect]
     Dosage: 900 MG, SINGLE
     Route: 042
     Dates: start: 20070814, end: 20070814
  4. COUMADIN [Concomitant]
     Dosage: 7.5 MG, QD
     Route: 048
  5. COUMADIN [Concomitant]
     Dosage: 5 MG, QW
     Route: 048
  6. MULTIVITAMIN /00831701/ [Concomitant]
     Dosage: UNK, QD
     Route: 048
  7. METFORMIN HCL [Concomitant]
     Indication: DIABETES MELLITUS
     Dosage: 500 MG, QD
     Route: 048

REACTIONS (1)
  - HEADACHE [None]
